FAERS Safety Report 8360329-1 (Version None)
Quarter: 2012Q1

REPORT INFORMATION
  Report Type: 
  Country: None (occurrence: None)
  Receive Date: 20120323
  Receipt Date: 20110928
  Transmission Date: 20120608
  Serious: Yes (Other)
  Sender: FDA-Public Use
  Company Number: 163-21880-11091223

PATIENT
  Age: 75 Year
  Sex: Male
  Weight: 75.7507 kg

DRUGS (8)
  1. PROCRIT [Concomitant]
  2. SIMVASTATIN [Concomitant]
  3. REVLIMID [Suspect]
     Indication: MYELODYSPLASTIC SYNDROME
     Dosage: 10 MG, X21 DAYS WITH 7 DAYS OFF, PO 5 MG, X21 DAYS WITH 7 DAYS OFF, PO
     Route: 048
     Dates: start: 20110901
  4. REVLIMID [Suspect]
     Indication: MYELODYSPLASTIC SYNDROME
     Dosage: 10 MG, X21 DAYS WITH 7 DAYS OFF, PO 5 MG, X21 DAYS WITH 7 DAYS OFF, PO
     Route: 048
     Dates: start: 20110712
  5. COMBIVENT [Concomitant]
  6. ASPIRIN [Concomitant]
  7. ADVAIR HFA [Concomitant]
  8. VITAMIN B12 [Concomitant]

REACTIONS (3)
  - LABORATORY TEST ABNORMAL [None]
  - DEHYDRATION [None]
  - VIRAL INFECTION [None]
